FAERS Safety Report 14561203 (Version 1)
Quarter: 2018Q1

REPORT INFORMATION
  Report Type: Spontaneous
  Country: US (occurrence: US)
  Receive Date: 20180221
  Receipt Date: 20180221
  Transmission Date: 20180509
  Serious: Yes (Other)
  Sender: FDA-Public Use
  Company Number: None

PATIENT
  Age: 56 Year
  Sex: Female
  Weight: 92.53 kg

DRUGS (17)
  1. ATOMOXETINE 60MG [Suspect]
     Active Substance: ATOMOXETINE HYDROCHLORIDE
     Indication: ATTENTION DEFICIT/HYPERACTIVITY DISORDER
     Dates: start: 20171111, end: 20171211
  2. CARISOPRODOL. [Concomitant]
     Active Substance: CARISOPRODOL
  3. CRANBERRY. [Concomitant]
     Active Substance: CRANBERRY
  4. TRETINOIN TOPICAL CREAM [Concomitant]
  5. BIOTIN [Concomitant]
     Active Substance: BIOTIN
  6. TRIAMCINOLONE ACETONIDE. [Concomitant]
     Active Substance: TRIAMCINOLONE ACETONIDE
  7. MUPIROCIN. [Concomitant]
     Active Substance: MUPIROCIN
  8. ACYCLOVIR. [Concomitant]
     Active Substance: ACYCLOVIR
  9. AZITHROMYCIN ANHYDROUS. [Concomitant]
     Active Substance: AZITHROMYCIN ANHYDROUS
  10. CEFUROXIME AXETIL. [Concomitant]
     Active Substance: CEFUROXIME AXETIL
  11. PREDNISONE. [Concomitant]
     Active Substance: PREDNISONE
  12. COMPR. STOCKING, THIGH, REG, X-LRG [Concomitant]
  13. IPRATROPIUM BROMIDE. [Concomitant]
     Active Substance: IPRATROPIUM BROMIDE
  14. TRETINOIN TOPICAL GEL [Concomitant]
  15. ZOLPIDEM [Concomitant]
     Active Substance: ZOLPIDEM\ZOLPIDEM TARTRATE
  16. CLINDAMYCIN. [Concomitant]
     Active Substance: CLINDAMYCIN
  17. ESTRIOL CREAM [Concomitant]

REACTIONS (10)
  - Headache [None]
  - Drug intolerance [None]
  - Insomnia [None]
  - Malaise [None]
  - Mood swings [None]
  - Depression [None]
  - Stress [None]
  - Product substitution issue [None]
  - Feeling abnormal [None]
  - Chronic fatigue syndrome [None]

NARRATIVE: CASE EVENT DATE: 20171111
